FAERS Safety Report 16953990 (Version 1)
Quarter: 2019Q4

REPORT INFORMATION
  Report Type: Spontaneous
  Country: US (occurrence: US)
  Receive Date: 20191023
  Receipt Date: 20191023
  Transmission Date: 20200122
  Serious: No
  Sender: FDA-Public Use
  Company Number: US-ABBVIE-19P-163-2872786-00

PATIENT
  Sex: Female

DRUGS (1)
  1. ORILISSA [Suspect]
     Active Substance: ELAGOLIX SODIUM
     Indication: ENDOMETRIOSIS
     Route: 048

REACTIONS (11)
  - Night sweats [Unknown]
  - Hot flush [Unknown]
  - Depression [Unknown]
  - Autophobia [Unknown]
  - Therapeutic product effect incomplete [Unknown]
  - Fear [Unknown]
  - Mood swings [Unknown]
  - Emotional distress [Unknown]
  - Weight increased [Unknown]
  - Abdominal distension [Unknown]
  - Depressed mood [Unknown]

NARRATIVE: CASE EVENT DATE: 201904
